FAERS Safety Report 5566550-X (Version None)
Quarter: 2007Q4

REPORT INFORMATION
  Report Type: 
  Country: None (occurrence: None)
  Receive Date: 20071219
  Receipt Date: 20071210
  Transmission Date: 20080405
  Serious: Yes (Other)
  Sender: FDA-Public Use
  Company Number: GB-JNJFOC-20071203143

PATIENT
  Sex: Female
  Weight: 62 kg

DRUGS (14)
  1. REMICADE [Suspect]
     Indication: RHEUMATOID ARTHRITIS
     Route: 042
  2. METHOTREXATE [Concomitant]
  3. PREDNISOLONE [Concomitant]
  4. ALENDRONATE SODIUM [Concomitant]
  5. CALCICHEW [Concomitant]
  6. CODEINE SUL TAB [Concomitant]
  7. DIFFLAM [Concomitant]
  8. DIPROBASE CREAM [Concomitant]
  9. FERROUS SULFATE TAB [Concomitant]
  10. FOLIC ACID [Concomitant]
  11. IBUPROFEN [Concomitant]
  12. LANSOPRAZOLE [Concomitant]
  13. ACETAMINOPHEN [Concomitant]
  14. LEVOTHYROXINE SODIUM [Concomitant]

REACTIONS (1)
  - BASAL CELL CARCINOMA [None]
